FAERS Safety Report 8402332-9 (Version None)
Quarter: 2012Q2

REPORT INFORMATION
  Report Type: 
  Country: None (occurrence: None)
  Receive Date: 20120601
  Receipt Date: 20120521
  Transmission Date: 20120825
  Serious: Yes (Hospitalization, Other)
  Sender: FDA-Public Use
  Company Number: BR-BRISTOL-MYERS SQUIBB COMPANY-16631400

PATIENT
  Age: 55 Year
  Sex: Female
  Weight: 62 kg

DRUGS (2)
  1. GALVUS [Concomitant]
     Dosage: 1DF:50/1000MG
  2. METFORMIN HCL [Suspect]
     Indication: DIABETIC NEUROPATHY
     Route: 048

REACTIONS (4)
  - OESOPHAGITIS [None]
  - DRUG INEFFECTIVE [None]
  - ANAEMIA [None]
  - MYOCARDIAL INFARCTION [None]
